FAERS Safety Report 6911051-7 (Version None)
Quarter: 2010Q3

REPORT INFORMATION
  Report Type: 
  Country: None (occurrence: None)
  Receive Date: 20100806
  Receipt Date: 20100729
  Transmission Date: 20110219
  Serious: Yes (Other)
  Sender: FDA-Public Use
  Company Number: B0668847A

PATIENT
  Sex: Female

DRUGS (1)
  1. DEROXAT [Suspect]
     Indication: PERSONALITY DISORDER
     Dosage: 20MG PER DAY
     Route: 065
     Dates: start: 20090401, end: 20090809

REACTIONS (2)
  - DRUG EXPOSURE DURING PREGNANCY [None]
  - PLACENTA PRAEVIA [None]
